FAERS Safety Report 8475634-8 (Version None)
Quarter: 2012Q2

REPORT INFORMATION
  Report Type: 
  Country: None (occurrence: None)
  Receive Date: 20120628
  Receipt Date: 20120614
  Transmission Date: 20120825
  Serious: Yes (Other)
  Sender: FDA-Public Use
  Company Number: GB-WATSON-2012-10541

PATIENT
  Age: 26 Year
  Sex: Female

DRUGS (3)
  1. DIAZEPAM [Suspect]
     Indication: TEMPORAL LOBE EPILEPSY
     Dosage: 5 MG, BID, TAKEN FOR 2 YEARS
     Route: 065
  2. MORPHINE [Suspect]
     Indication: PRODUCT USED FOR UNKNOWN INDICATION
     Route: 065
  3. ZOPICLONE (UNKNOWN) [Suspect]
     Indication: PRODUCT USED FOR UNKNOWN INDICATION
     Dosage: UNK
     Route: 065

REACTIONS (1)
  - MEMORY IMPAIRMENT [None]
